FAERS Safety Report 6779334-1 (Version None)
Quarter: 2010Q2

REPORT INFORMATION
  Report Type: 
  Country: None (occurrence: None)
  Receive Date: 20100618
  Receipt Date: 20100609
  Transmission Date: 20101027
  Serious: Yes (Hospitalization, Other)
  Sender: FDA-Public Use
  Company Number: NO-JNJFOC-20100601147

PATIENT
  Sex: Female

DRUGS (5)
  1. REMICADE [Suspect]
     Indication: COLITIS ULCERATIVE
     Route: 042
  2. REMICADE [Suspect]
     Route: 042
  3. IMUREL [Concomitant]
     Indication: COLITIS ULCERATIVE
  4. PREDNISOLONE [Concomitant]
     Indication: COLITIS ULCERATIVE
  5. PREDNISOLONE [Concomitant]

REACTIONS (2)
  - ASTHENIA [None]
  - TREMOR [None]
